FAERS Safety Report 19500078 (Version 1)
Quarter: 2021Q3

REPORT INFORMATION
  Report Type: Spontaneous
  Country: AU (occurrence: AU)
  Receive Date: 20210706
  Receipt Date: 20210706
  Transmission Date: 20211014
  Serious: Yes (Other)
  Sender: FDA-Public Use
  Company Number: NVSC2021AU150443

PATIENT
  Age: 60 Year
  Sex: Male

DRUGS (7)
  1. ETANERCEPT [Concomitant]
     Active Substance: ETANERCEPT
     Indication: PRODUCT USED FOR UNKNOWN INDICATION
     Route: 065
  2. PERINDOPRIL [Concomitant]
     Active Substance: PERINDOPRIL
     Indication: HYPERTENSION
     Route: 065
  3. GOLIMUMAB [Concomitant]
     Active Substance: GOLIMUMAB
     Indication: PRODUCT USED FOR UNKNOWN INDICATION
     Dosage: (16 WEEKS)
     Route: 065
  4. CELECOXIB. [Concomitant]
     Active Substance: CELECOXIB
     Indication: PRODUCT USED FOR UNKNOWN INDICATION
     Route: 065
  5. MELOXICAM. [Concomitant]
     Active Substance: MELOXICAM
     Indication: PRODUCT USED FOR UNKNOWN INDICATION
     Route: 065
  6. SECUKINUMAB. [Suspect]
     Active Substance: SECUKINUMAB
     Indication: ANKYLOSING SPONDYLITIS
     Dosage: 150 MG
     Route: 065
  7. SECUKINUMAB. [Suspect]
     Active Substance: SECUKINUMAB
     Dosage: 300 MG (AFTER 12 MONTHS)
     Route: 065

REACTIONS (12)
  - Chest discomfort [Unknown]
  - Sacroiliac joint dysfunction [Unknown]
  - Therapeutic product effect incomplete [Unknown]
  - Osteoarthritis [Unknown]
  - Lumbar spinal stenosis [Unknown]
  - Back pain [Unknown]
  - Inflammatory pain [Unknown]
  - Intervertebral disc degeneration [Unknown]
  - Osteonecrosis [Unknown]
  - Lower respiratory tract infection [Unknown]
  - Intervertebral discitis [Unknown]
  - Spinal disorder [Unknown]
